FAERS Safety Report 5386697-0 (Version None)
Quarter: 2007Q3

REPORT INFORMATION
  Report Type: 
  Country: None (occurrence: None)
  Receive Date: 20070713
  Receipt Date: 20070703
  Transmission Date: 20080115
  Serious: Yes (Life-Threatening, Hospitalization, Other)
  Sender: FDA-Public Use
  Company Number: AU-ROCHE-492365

PATIENT
  Age: 32 Year
  Sex: Female
  Weight: 82.5 kg

DRUGS (11)
  1. CAPECITABINE [Suspect]
     Dosage: 1000 MG/M2 TWICE-DAILY, DAYS 1-15 (WITH FIRST DOSE THE EVENING OF DAY 1 AND LAST DOSE IN THE EVENIN+
     Route: 048
     Dates: start: 20061211
  2. CAPECITABINE [Suspect]
     Route: 048
     Dates: start: 20070515
  3. BEVACIZUMAB [Suspect]
     Dosage: 7.5 MG/KG ADMINISTERED AS AN INTRAVENOUS INFUSION OVER 30-90 MINUTES ON DAY 1 OF THREE WEEK CYCLE A+
     Route: 042
     Dates: start: 20061211
  4. BEVACIZUMAB [Suspect]
     Route: 042
     Dates: start: 20070515
  5. OXALIPLATIN [Suspect]
     Dosage: 130 MG/M2 INTRAVENOUS INFUSION OVER 2 HOURS ADMINISTERED ON DAY 1 OF 3 WEEKS CYCLE AS PER PROTOCOL +
     Route: 042
     Dates: start: 20061211
  6. OXALIPLATIN [Suspect]
     Route: 042
     Dates: start: 20070515
  7. PLENDIL [Concomitant]
     Dates: start: 20061123, end: 20070416
  8. LIPITOR [Concomitant]
     Dates: start: 20061121
  9. EZETROL [Concomitant]
     Dates: start: 20061121
  10. ASTRIX [Concomitant]
     Dates: start: 20061207
  11. METFORMIN HCL [Concomitant]
     Dates: start: 20070215, end: 20070407

REACTIONS (4)
  - DIARRHOEA [None]
  - METABOLIC ACIDOSIS [None]
  - OESOPHAGITIS [None]
  - SEPSIS [None]
